FAERS Safety Report 21241960 (Version 2)
Quarter: 2022Q3

REPORT INFORMATION
  Report Type: Spontaneous
  Country: TH (occurrence: TH)
  Receive Date: 20220823
  Receipt Date: 20220912
  Transmission Date: 20221026
  Serious: Yes (Hospitalization, Other)
  Sender: FDA-Public Use
  Company Number: TH-NOVARTISPH-NVSC2022TH185141

PATIENT
  Age: 61 Year
  Sex: Male

DRUGS (85)
  1. SACUBITRIL\VALSARTAN [Suspect]
     Active Substance: SACUBITRIL\VALSARTAN
     Indication: Product used for unknown indication
     Dosage: 100 MG, BID, HALF TABLET
     Route: 065
     Dates: start: 202009, end: 202110
  2. SACUBITRIL\VALSARTAN [Suspect]
     Active Substance: SACUBITRIL\VALSARTAN
     Dosage: 200 MG, BID, A QUARTER TABLET
     Route: 065
     Dates: start: 20211117
  3. SACUBITRIL\VALSARTAN [Suspect]
     Active Substance: SACUBITRIL\VALSARTAN
     Dosage: 200 MG, BID, HALF TABLET
     Route: 065
     Dates: start: 20211201
  4. SACUBITRIL\VALSARTAN [Suspect]
     Active Substance: SACUBITRIL\VALSARTAN
     Dosage: 200 MG, BID, ONE TABLET
     Route: 065
     Dates: start: 20211215
  5. SACUBITRIL\VALSARTAN [Suspect]
     Active Substance: SACUBITRIL\VALSARTAN
     Dosage: 200 MG, BID
     Route: 065
     Dates: start: 20220105
  6. SACUBITRIL\VALSARTAN [Suspect]
     Active Substance: SACUBITRIL\VALSARTAN
     Dosage: 200 MG, BID
     Route: 065
     Dates: start: 20220119
  7. SACUBITRIL\VALSARTAN [Suspect]
     Active Substance: SACUBITRIL\VALSARTAN
     Dosage: 200 MG, BID
     Route: 065
     Dates: start: 20220202
  8. SACUBITRIL\VALSARTAN [Suspect]
     Active Substance: SACUBITRIL\VALSARTAN
     Dosage: 200 MG, BID
     Route: 065
     Dates: start: 20220302
  9. SACUBITRIL\VALSARTAN [Suspect]
     Active Substance: SACUBITRIL\VALSARTAN
     Dosage: 200 MG, BID
     Route: 065
     Dates: start: 20220420
  10. SACUBITRIL\VALSARTAN [Suspect]
     Active Substance: SACUBITRIL\VALSARTAN
     Dosage: 200 MG, BID
     Route: 065
     Dates: start: 20220518
  11. SACUBITRIL\VALSARTAN [Suspect]
     Active Substance: SACUBITRIL\VALSARTAN
     Dosage: 200 MG, BID
     Route: 065
     Dates: start: 20220615
  12. SACUBITRIL\VALSARTAN [Suspect]
     Active Substance: SACUBITRIL\VALSARTAN
     Dosage: 200 MG, BID
     Route: 065
     Dates: start: 20220706
  13. SPIRONOLACTONE [Concomitant]
     Active Substance: SPIRONOLACTONE
     Indication: Product used for unknown indication
     Dosage: 25 MG, QD
     Route: 065
  14. SPIRONOLACTONE [Concomitant]
     Active Substance: SPIRONOLACTONE
     Dosage: 25 MG, QD
     Route: 065
  15. SPIRONOLACTONE [Concomitant]
     Active Substance: SPIRONOLACTONE
     Dosage: 25 MG, QD
     Route: 065
  16. SPIRONOLACTONE [Concomitant]
     Active Substance: SPIRONOLACTONE
     Dosage: 25 MG, QD
     Route: 065
  17. SPIRONOLACTONE [Concomitant]
     Active Substance: SPIRONOLACTONE
     Dosage: UNK, OFF SPIRONOLACTONE
     Route: 065
  18. SPIRONOLACTONE [Concomitant]
     Active Substance: SPIRONOLACTONE
     Dosage: 25 MG, QD
     Route: 065
  19. SPIRONOLACTONE [Concomitant]
     Active Substance: SPIRONOLACTONE
     Dosage: 25 MG, QD
     Route: 065
  20. SPIRONOLACTONE [Concomitant]
     Active Substance: SPIRONOLACTONE
     Dosage: 25 MG, QD
     Route: 065
  21. SPIRONOLACTONE [Concomitant]
     Active Substance: SPIRONOLACTONE
     Dosage: 25 MG, BID
     Route: 065
  22. SPIRONOLACTONE [Concomitant]
     Active Substance: SPIRONOLACTONE
     Dosage: 25 MG, BID
     Route: 065
  23. SPIRONOLACTONE [Concomitant]
     Active Substance: SPIRONOLACTONE
     Dosage: 25 MG, BID
     Route: 065
  24. SPIRONOLACTONE [Concomitant]
     Active Substance: SPIRONOLACTONE
     Dosage: 25 MG, BID
     Route: 065
  25. SPIRONOLACTONE [Concomitant]
     Active Substance: SPIRONOLACTONE
     Dosage: 25 MG, BID
     Route: 065
  26. SPIRONOLACTONE [Concomitant]
     Active Substance: SPIRONOLACTONE
     Dosage: 25 MG, BID
     Route: 065
  27. SPIRONOLACTONE [Concomitant]
     Active Substance: SPIRONOLACTONE
     Dosage: 25 MG, BID
     Route: 065
  28. SPIRONOLACTONE [Concomitant]
     Active Substance: SPIRONOLACTONE
     Dosage: 25 MG, BID
     Route: 065
  29. IVABRADINE [Concomitant]
     Active Substance: IVABRADINE
     Indication: Product used for unknown indication
     Dosage: 5 MG, BID
     Route: 065
     Dates: start: 202009
  30. IVABRADINE [Concomitant]
     Active Substance: IVABRADINE
     Dosage: 7.5 MG, BID
     Route: 065
     Dates: start: 202110
  31. IVABRADINE [Concomitant]
     Active Substance: IVABRADINE
     Dosage: 200 MG, QD
     Route: 065
     Dates: start: 20211117
  32. AMIODARONE [Concomitant]
     Active Substance: AMIODARONE
     Indication: Product used for unknown indication
     Dosage: 200 MG, TID
     Route: 065
     Dates: start: 202110
  33. AMIODARONE [Concomitant]
     Active Substance: AMIODARONE
     Dosage: 200 MG, QD
     Route: 065
     Dates: start: 20220105
  34. AMIODARONE [Concomitant]
     Active Substance: AMIODARONE
     Dosage: 200 MG, BID
     Route: 065
     Dates: start: 20220119
  35. AMIODARONE [Concomitant]
     Active Substance: AMIODARONE
     Dosage: 200 MG, BID
     Route: 065
     Dates: start: 20220202
  36. AMIODARONE [Concomitant]
     Active Substance: AMIODARONE
     Dosage: 200 MG, BID
     Route: 065
     Dates: start: 20220302
  37. AMIODARONE [Concomitant]
     Active Substance: AMIODARONE
     Dosage: 200 MG, BID
     Route: 065
     Dates: start: 20220420
  38. AMIODARONE [Concomitant]
     Active Substance: AMIODARONE
     Dosage: 200 MG, BID
     Route: 065
     Dates: start: 20220518
  39. DIGOXIN [Concomitant]
     Active Substance: DIGOXIN
     Indication: Product used for unknown indication
     Dosage: 0.25 MG, QD
     Route: 065
  40. DIGOXIN [Concomitant]
     Active Substance: DIGOXIN
     Dosage: 0.25 MG, QD
     Route: 065
  41. DIGOXIN [Concomitant]
     Active Substance: DIGOXIN
     Dosage: UNK, OFF DIGOXIN
     Route: 065
  42. DIGOXIN [Concomitant]
     Active Substance: DIGOXIN
     Dosage: 0.25 MG, QD
     Route: 065
  43. DIGOXIN [Concomitant]
     Active Substance: DIGOXIN
     Dosage: 0.25 MG, BID
     Route: 065
  44. DIGOXIN [Concomitant]
     Active Substance: DIGOXIN
     Dosage: 0.25 MG, BID
     Route: 065
  45. DIGOXIN [Concomitant]
     Active Substance: DIGOXIN
     Dosage: 0.25 MG, BID
     Route: 065
  46. DIGOXIN [Concomitant]
     Active Substance: DIGOXIN
     Dosage: 0.25 MG, BID
     Route: 065
  47. DIGOXIN [Concomitant]
     Active Substance: DIGOXIN
     Dosage: 0.25 MG, BID
     Route: 065
  48. DIGOXIN [Concomitant]
     Active Substance: DIGOXIN
     Dosage: UNK, OFF DIGOXIN
     Route: 065
  49. DIGOXIN [Concomitant]
     Active Substance: DIGOXIN
     Dosage: 0.25 MG, BID
     Route: 065
  50. HYDROCHLOROTHIAZIDE [Concomitant]
     Active Substance: HYDROCHLOROTHIAZIDE
     Indication: Product used for unknown indication
     Dosage: 25 MG, BID
     Route: 065
     Dates: start: 20220105
  51. HYDROCHLOROTHIAZIDE [Concomitant]
     Active Substance: HYDROCHLOROTHIAZIDE
     Dosage: UNK, PRN
     Route: 065
     Dates: start: 20220119
  52. HYDROCHLOROTHIAZIDE [Concomitant]
     Active Substance: HYDROCHLOROTHIAZIDE
     Dosage: 25 MG, PRN
     Route: 065
     Dates: start: 20220420
  53. HYDROCHLOROTHIAZIDE [Concomitant]
     Active Substance: HYDROCHLOROTHIAZIDE
     Dosage: UNK, PRN
     Route: 065
     Dates: start: 20220518
  54. FUROSEMIDE [Concomitant]
     Active Substance: FUROSEMIDE
     Indication: Product used for unknown indication
     Dosage: UNK, OFF FUROSEMIDE
     Route: 065
  55. FUROSEMIDE [Concomitant]
     Active Substance: FUROSEMIDE
     Dosage: 40 MG, QD
     Route: 065
  56. FUROSEMIDE [Concomitant]
     Active Substance: FUROSEMIDE
     Dosage: 40 MG, QD
     Route: 065
  57. FUROSEMIDE [Concomitant]
     Active Substance: FUROSEMIDE
     Dosage: 40 MG, QD
     Route: 065
  58. FUROSEMIDE [Concomitant]
     Active Substance: FUROSEMIDE
     Dosage: 40 MG, BID
     Route: 065
  59. FUROSEMIDE [Concomitant]
     Active Substance: FUROSEMIDE
     Dosage: 40 MG, BID
     Route: 065
  60. FUROSEMIDE [Concomitant]
     Active Substance: FUROSEMIDE
     Dosage: 40 MG, BID
     Route: 065
  61. FUROSEMIDE [Concomitant]
     Active Substance: FUROSEMIDE
     Dosage: 40 MG, BID
     Route: 065
  62. FUROSEMIDE [Concomitant]
     Active Substance: FUROSEMIDE
     Dosage: 40 MG, BID
     Route: 065
  63. FUROSEMIDE [Concomitant]
     Active Substance: FUROSEMIDE
     Dosage: 40 MG, BID
     Route: 065
  64. FUROSEMIDE [Concomitant]
     Active Substance: FUROSEMIDE
     Dosage: 40 MG, BID
     Route: 065
  65. FUROSEMIDE [Concomitant]
     Active Substance: FUROSEMIDE
     Dosage: 40 MG, BID
     Route: 065
  66. FUROSEMIDE [Concomitant]
     Active Substance: FUROSEMIDE
     Dosage: 40 MG, BID
     Route: 065
  67. FUROSEMIDE [Concomitant]
     Active Substance: FUROSEMIDE
     Dosage: 40 MG, BID
     Route: 065
  68. FUROSEMIDE [Concomitant]
     Active Substance: FUROSEMIDE
     Dosage: 40 MG, BID
     Route: 065
  69. FUROSEMIDE [Concomitant]
     Active Substance: FUROSEMIDE
     Dosage: 40 MG, BID
     Route: 065
  70. BISOPROLOL [Concomitant]
     Active Substance: BISOPROLOL
     Indication: Product used for unknown indication
     Dosage: 2.5 MG, QD
     Route: 065
  71. BISOPROLOL [Concomitant]
     Active Substance: BISOPROLOL
     Dosage: 2.5 MG, QD
     Route: 065
  72. BISOPROLOL [Concomitant]
     Active Substance: BISOPROLOL
     Dosage: UNK, OFF BISOPROLOL
     Route: 065
  73. BISOPROLOL [Concomitant]
     Active Substance: BISOPROLOL
     Dosage: UNK, OFF BISOPROLOL
     Route: 065
  74. BISOPROLOL [Concomitant]
     Active Substance: BISOPROLOL
     Dosage: UNK, OFF BISOPROLOL
     Route: 065
  75. BISOPROLOL [Concomitant]
     Active Substance: BISOPROLOL
     Dosage: UNK, OFF BISOPROLOL
     Route: 065
  76. BISOPROLOL [Concomitant]
     Active Substance: BISOPROLOL
     Dosage: UNK, OFF BISOPROLOL
     Route: 065
  77. BISOPROLOL [Concomitant]
     Active Substance: BISOPROLOL
     Dosage: UNK, OFF BISOPROLOL
     Route: 065
  78. BISOPROLOL [Concomitant]
     Active Substance: BISOPROLOL
     Dosage: 2.5 MG, QD
     Route: 065
  79. BISOPROLOL [Concomitant]
     Active Substance: BISOPROLOL
     Dosage: 2.5 MG, QD
     Route: 065
  80. BISOPROLOL [Concomitant]
     Active Substance: BISOPROLOL
     Dosage: 2.5 MG, QD
     Route: 065
  81. BISOPROLOL [Concomitant]
     Active Substance: BISOPROLOL
     Dosage: 2.5 MG, QD
     Route: 065
  82. BISOPROLOL [Concomitant]
     Active Substance: BISOPROLOL
     Dosage: 2.5 MG, QD
     Route: 065
  83. BISOPROLOL [Concomitant]
     Active Substance: BISOPROLOL
     Dosage: 2.5 MG, QD
     Route: 065
  84. BISOPROLOL [Concomitant]
     Active Substance: BISOPROLOL
     Dosage: 2.5 MG, QD
     Route: 065
  85. BISOPROLOL [Concomitant]
     Active Substance: BISOPROLOL
     Dosage: 2.5 MG, QD
     Route: 065

REACTIONS (20)
  - Cardiac failure [Unknown]
  - Cardiac failure acute [Unknown]
  - Cardiogenic shock [Unknown]
  - Renal failure [Unknown]
  - Hepatic failure [Unknown]
  - Ventricular tachycardia [Unknown]
  - Pollakiuria [Unknown]
  - Fatigue [Unknown]
  - Primary progressive multiple sclerosis [Unknown]
  - Heart rate decreased [Unknown]
  - Aortic valve incompetence [Unknown]
  - Mitral valve incompetence [Unknown]
  - Thrombosis [Unknown]
  - Hypotension [Unknown]
  - COVID-19 [Unknown]
  - Blood potassium decreased [Unknown]
  - Blood creatinine increased [Recovering/Resolving]
  - Gynaecomastia [Unknown]
  - Ejection fraction decreased [Unknown]
  - Wrong technique in product usage process [Unknown]

NARRATIVE: CASE EVENT DATE: 20211001
